FAERS Safety Report 4508804-1 (Version None)
Quarter: 2004Q4

REPORT INFORMATION
  Report Type: 
  Country: None (occurrence: None)
  Receive Date: 20041123
  Receipt Date: 20040816
  Transmission Date: 20050328
  Serious: No
  Sender: FDA-Public Use
  Company Number: US-GLAXOSMITHKLINE-A0522257A

PATIENT
  Age: 58 Year
  Sex: Female

DRUGS (9)
  1. BUPROPION HYDROCHLORIDE [Suspect]
     Indication: DEPRESSION
     Dosage: 150MG PER DAY
     Route: 048
  2. LIPITOR [Concomitant]
  3. LASIX [Concomitant]
  4. ATENOLOL [Concomitant]
  5. ZESTRIL [Concomitant]
  6. ZOLOFT [Concomitant]
  7. HYDROCHLOROTHIAZIDE [Concomitant]
  8. PRILOSEC [Concomitant]
  9. LORATADINE [Concomitant]

REACTIONS (1)
  - ECZEMA [None]
